FAERS Safety Report 15577662 (Version 4)
Quarter: 2018Q4

REPORT INFORMATION
  Report Type: Spontaneous
  Country: JP (occurrence: JP)
  Receive Date: 20181102
  Receipt Date: 20181129
  Transmission Date: 20190205
  Serious: Yes (Hospitalization, Other)
  Sender: FDA-Public Use
  Company Number: JP-ASTRAZENECA-2018SF42194

PATIENT
  Age: 86 Year
  Sex: Male

DRUGS (12)
  1. REPAGLINIDE. [Interacting]
     Active Substance: REPAGLINIDE
     Indication: TYPE 2 DIABETES MELLITUS
     Route: 048
     Dates: end: 2017
  2. TALION [Concomitant]
     Dates: end: 2017
  3. CALONAL [Concomitant]
     Active Substance: ACETAMINOPHEN
     Route: 048
     Dates: end: 2017
  4. REQUIP [Concomitant]
     Active Substance: ROPINIROLE HYDROCHLORIDE
     Route: 048
     Dates: end: 2017
  5. LOSARTAN POTASSIUM. [Concomitant]
     Active Substance: LOSARTAN POTASSIUM
     Route: 048
  6. AMITIZA [Concomitant]
     Active Substance: LUBIPROSTONE
     Dates: end: 2017
  7. NIFEDIPINE. [Concomitant]
     Active Substance: NIFEDIPINE
     Route: 048
     Dates: end: 2017
  8. SAWACILLIN [Concomitant]
     Active Substance: AMOXICILLIN
     Route: 048
  9. REMINYL [Concomitant]
     Active Substance: GALANTAMINE
     Dates: end: 2017
  10. FORXIGA [Suspect]
     Active Substance: DAPAGLIFLOZIN
     Indication: TYPE 2 DIABETES MELLITUS
     Route: 048
     Dates: end: 20180508
  11. FP [Interacting]
     Active Substance: SELEGILINE HYDROCHLORIDE
     Dosage: DOSE UNKNOWN
     Route: 048
     Dates: end: 2017
  12. SENNOSIDE [Concomitant]
     Active Substance: SENNOSIDES
     Route: 048
     Dates: end: 2017

REACTIONS (5)
  - Atrioventricular block [Recovered/Resolved]
  - Hypoglycaemia [Recovered/Resolved]
  - Nasopharyngitis [Unknown]
  - Drug interaction [Unknown]
  - Lacunar infarction [Recovered/Resolved]

NARRATIVE: CASE EVENT DATE: 20170508
